FAERS Safety Report 6059874-3 (Version None)
Quarter: 2009Q1

REPORT INFORMATION
  Report Type: 
  Country: None (occurrence: None)
  Receive Date: 20090130
  Receipt Date: 20090119
  Transmission Date: 20090719
  Serious: Yes (Other)
  Sender: FDA-Public Use
  Company Number: MX-ELI_LILLY_AND_COMPANY-MX200901003085

PATIENT
  Age: 75 Year
  Sex: Female
  Weight: 52 kg

DRUGS (2)
  1. FORTEO [Suspect]
     Indication: OSTEOPOROSIS
     Dosage: 20 UG, DAILY (1/D)
     Route: 058
     Dates: start: 20071101, end: 20080408
  2. URSO FALK [Concomitant]
     Indication: HEPATITIS C
     Dosage: UNK UNK, 3/D
     Route: 065

REACTIONS (2)
  - CEREBRAL INFARCTION [None]
  - MEMORY IMPAIRMENT [None]
